FAERS Safety Report 21155941 (Version 1)
Quarter: 2022Q3

REPORT INFORMATION
  Report Type: Report from Study
  Country: IN (occurrence: IN)
  Receive Date: 20220801
  Receipt Date: 20220801
  Transmission Date: 20221026
  Serious: Yes (Death, Life-Threatening, Other)
  Sender: FDA-Public Use
  Company Number: IN-SA-2022SA304068

PATIENT

DRUGS (4)
  1. ASPIRIN [Suspect]
     Active Substance: ASPIRIN
     Indication: Metastatic gastric cancer
     Dosage: 150 MG, QD
  2. OXALIPLATIN [Suspect]
     Active Substance: OXALIPLATIN
     Indication: Metastatic gastric cancer
     Dosage: 130 MG/M2, Q3W, OVER 2 HOURS,  D1
     Route: 041
  3. CAPECITABINE [Suspect]
     Active Substance: CAPECITABINE
     Indication: Metastatic gastric cancer
     Dosage: 625 MG/M2, BID, (ON DAYS 1-21 OF CYCLE)
     Route: 048
  4. EPIRUBICIN [Suspect]
     Active Substance: EPIRUBICIN
     Indication: Metastatic gastric cancer
     Dosage: 50 MG/M2, Q3W, ON D1
     Route: 040

REACTIONS (1)
  - Febrile neutropenia [Fatal]
